FAERS Safety Report 6655154-3 (Version None)
Quarter: 2010Q1

REPORT INFORMATION
  Report Type: 
  Country: None (occurrence: None)
  Receive Date: 20100329
  Receipt Date: 20100323
  Transmission Date: 20100710
  Serious: Yes (Life-Threatening, Hospitalization)
  Sender: FDA-Public Use
  Company Number: US-JNJFOC-20100306721

PATIENT
  Sex: Male

DRUGS (7)
  1. SIMPONI [Suspect]
     Indication: RHEUMATOID ARTHRITIS
     Route: 058
  2. HUMIRA [Suspect]
     Indication: RHEUMATOID ARTHRITIS
  3. ATIVAN [Concomitant]
     Indication: PSYCHOTIC DISORDER
  4. DEPAKOTE [Concomitant]
     Indication: PSYCHOTIC DISORDER
  5. FOLIC ACID [Concomitant]
     Indication: RHEUMATOID ARTHRITIS
  6. METHOTREXATE [Concomitant]
     Indication: RHEUMATOID ARTHRITIS
  7. PREDNISONE TAB [Concomitant]
     Indication: RHEUMATOID ARTHRITIS

REACTIONS (4)
  - APLASTIC ANAEMIA [None]
  - CARDIAC FAILURE [None]
  - DRUG INEFFECTIVE [None]
  - URTICARIA [None]
